FAERS Safety Report 25934972 (Version 1)
Quarter: 2025Q4

REPORT INFORMATION
  Report Type: Spontaneous
  Country: EU (occurrence: EU)
  Receive Date: 20251017
  Receipt Date: 20251017
  Transmission Date: 20260118
  Serious: Yes (Hospitalization)
  Sender: MYLAN
  Company Number: EU-MYLANLABS-2025M1088424

PATIENT
  Age: 64 Year
  Sex: Male
  Weight: 134 kg

DRUGS (34)
  1. FENTANYL [Suspect]
     Active Substance: FENTANYL
     Indication: Induction and maintenance of anaesthesia
     Dosage: 0.7 MILLIGRAM, RECEIVED 0.7 MG DURING SURGERY
  2. FENTANYL [Suspect]
     Active Substance: FENTANYL
     Indication: Postoperative analgesia
     Dosage: 0.7 MILLIGRAM, RECEIVED 0.7 MG DURING SURGERY
     Route: 065
  3. FENTANYL [Suspect]
     Active Substance: FENTANYL
     Dosage: 0.7 MILLIGRAM, RECEIVED 0.7 MG DURING SURGERY
     Route: 065
  4. FENTANYL [Suspect]
     Active Substance: FENTANYL
     Dosage: 0.7 MILLIGRAM, RECEIVED 0.7 MG DURING SURGERY
  5. FENTANYL [Suspect]
     Active Substance: FENTANYL
     Indication: Induction and maintenance of anaesthesia
     Dosage: 5 MILLILITER, QH, RECEIVED 0.01 MG/ML AT A RATE OF 5 ML/H
  6. FENTANYL [Suspect]
     Active Substance: FENTANYL
     Indication: Postoperative analgesia
     Dosage: 5 MILLILITER, QH, RECEIVED 0.01 MG/ML AT A RATE OF 5 ML/H
     Route: 065
  7. FENTANYL [Suspect]
     Active Substance: FENTANYL
     Dosage: 5 MILLILITER, QH, RECEIVED 0.01 MG/ML AT A RATE OF 5 ML/H
     Route: 065
  8. FENTANYL [Suspect]
     Active Substance: FENTANYL
     Dosage: 5 MILLILITER, QH, RECEIVED 0.01 MG/ML AT A RATE OF 5 ML/H
  9. DEXKETOPROFEN [Suspect]
     Active Substance: DEXKETOPROFEN
     Indication: Postoperative analgesia
     Dosage: 50 MILLIGRAM
  10. DEXKETOPROFEN [Suspect]
     Active Substance: DEXKETOPROFEN
     Dosage: 50 MILLIGRAM
     Route: 042
  11. DEXKETOPROFEN [Suspect]
     Active Substance: DEXKETOPROFEN
     Dosage: 50 MILLIGRAM
     Route: 042
  12. DEXKETOPROFEN [Suspect]
     Active Substance: DEXKETOPROFEN
     Dosage: 50 MILLIGRAM
  13. MIDAZOLAM [Concomitant]
     Active Substance: MIDAZOLAM
     Indication: Premedication
     Dosage: 7.5 MILLIGRAM
  14. MIDAZOLAM [Concomitant]
     Active Substance: MIDAZOLAM
     Dosage: 7.5 MILLIGRAM
     Route: 048
  15. MIDAZOLAM [Concomitant]
     Active Substance: MIDAZOLAM
     Dosage: 7.5 MILLIGRAM
     Route: 048
  16. MIDAZOLAM [Concomitant]
     Active Substance: MIDAZOLAM
     Dosage: 7.5 MILLIGRAM
  17. PROPOFOL [Concomitant]
     Active Substance: PROPOFOL
     Indication: Induction of anaesthesia
     Dosage: 350 MILLIGRAM, RECEIVED INITIALLY 200MG WITH TOTAL 350MG DURING SURGERY
  18. PROPOFOL [Concomitant]
     Active Substance: PROPOFOL
     Dosage: 350 MILLIGRAM, RECEIVED INITIALLY 200MG WITH TOTAL 350MG DURING SURGERY
     Route: 065
  19. PROPOFOL [Concomitant]
     Active Substance: PROPOFOL
     Dosage: 350 MILLIGRAM, RECEIVED INITIALLY 200MG WITH TOTAL 350MG DURING SURGERY
     Route: 065
  20. PROPOFOL [Concomitant]
     Active Substance: PROPOFOL
     Dosage: 350 MILLIGRAM, RECEIVED INITIALLY 200MG WITH TOTAL 350MG DURING SURGERY
  21. CISATRACURIUM [Concomitant]
     Active Substance: CISATRACURIUM
     Indication: Induction and maintenance of anaesthesia
     Dosage: 50 MILLIGRAM, RECEIVED INITALLY 20MG WITH TOTAL 50MG DURING SURGERY
  22. CISATRACURIUM [Concomitant]
     Active Substance: CISATRACURIUM
     Dosage: 50 MILLIGRAM, RECEIVED INITALLY 20MG WITH TOTAL 50MG DURING SURGERY
     Route: 065
  23. CISATRACURIUM [Concomitant]
     Active Substance: CISATRACURIUM
     Dosage: 50 MILLIGRAM, RECEIVED INITALLY 20MG WITH TOTAL 50MG DURING SURGERY
     Route: 065
  24. CISATRACURIUM [Concomitant]
     Active Substance: CISATRACURIUM
     Dosage: 50 MILLIGRAM, RECEIVED INITALLY 20MG WITH TOTAL 50MG DURING SURGERY
  25. SEVOFLURANE [Concomitant]
     Active Substance: SEVOFLURANE
     Indication: Maintenance of anaesthesia
     Dosage: UNK
     Route: 065
  26. SEVOFLURANE [Concomitant]
     Active Substance: SEVOFLURANE
     Dosage: UNK
  27. ACETAMINOPHEN [Concomitant]
     Active Substance: ACETAMINOPHEN
     Indication: Postoperative analgesia
     Dosage: 1 GRAM
  28. ACETAMINOPHEN [Concomitant]
     Active Substance: ACETAMINOPHEN
     Dosage: 1 GRAM
     Route: 065
  29. ACETAMINOPHEN [Concomitant]
     Active Substance: ACETAMINOPHEN
     Dosage: 1 GRAM
     Route: 065
  30. ACETAMINOPHEN [Concomitant]
     Active Substance: ACETAMINOPHEN
     Dosage: 1 GRAM
  31. METAMIZOLE [Concomitant]
     Active Substance: METAMIZOLE
     Indication: Postoperative analgesia
     Dosage: 1 GRAM
  32. METAMIZOLE [Concomitant]
     Active Substance: METAMIZOLE
     Dosage: 1 GRAM
     Route: 065
  33. METAMIZOLE [Concomitant]
     Active Substance: METAMIZOLE
     Dosage: 1 GRAM
     Route: 065
  34. METAMIZOLE [Concomitant]
     Active Substance: METAMIZOLE
     Dosage: 1 GRAM

REACTIONS (1)
  - Drug ineffective [Unknown]
